FAERS Safety Report 14832640 (Version 6)
Quarter: 2020Q1

REPORT INFORMATION
  Report Type: Spontaneous
  Country: US (occurrence: US)
  Receive Date: 20180501
  Receipt Date: 20200306
  Transmission Date: 20200409
  Serious: Yes (Other)
  Sender: FDA-Public Use
  Company Number: US-GLAXOSMITHKLINE-US2018GSK068180

PATIENT
  Sex: Male

DRUGS (2)
  1. PREVACID [Suspect]
     Active Substance: LANSOPRAZOLE
     Indication: PRODUCT USED FOR UNKNOWN INDICATION
     Dosage: UNK
     Route: 065
  2. PREVACID [Suspect]
     Active Substance: LANSOPRAZOLE
     Indication: GASTROOESOPHAGEAL REFLUX DISEASE
     Dosage: 30 MG, TID (MORNING, NOON, NIGHT)
     Route: 065

REACTIONS (7)
  - Acute kidney injury [Unknown]
  - Renal failure [Unknown]
  - Dialysis [Unknown]
  - Chronic kidney disease [Unknown]
  - Renal injury [Unknown]
  - Renal impairment [Unknown]
  - Hyperchlorhydria [Unknown]
